FAERS Safety Report 25774596 (Version 1)
Quarter: 2025Q3

REPORT INFORMATION
  Report Type: Spontaneous
  Country: US (occurrence: US)
  Receive Date: 20250908
  Receipt Date: 20250908
  Transmission Date: 20251021
  Serious: No
  Sender: AMGEN
  Company Number: US-AMGEN-USASP2025174606

PATIENT
  Age: 4 Decade
  Sex: Female

DRUGS (1)
  1. REPATHA [Suspect]
     Active Substance: EVOLOCUMAB
     Indication: Product used for unknown indication
     Route: 065
     Dates: start: 20250829

REACTIONS (5)
  - Hyperacusis [Unknown]
  - Pain [Unknown]
  - Fatigue [Unknown]
  - Menstruation irregular [Unknown]
  - Headache [Unknown]

NARRATIVE: CASE EVENT DATE: 20250829
